FAERS Safety Report 8485601-6 (Version None)
Quarter: 2012Q3

REPORT INFORMATION
  Report Type: 
  Country: None (occurrence: None)
  Receive Date: 20120703
  Receipt Date: 20120624
  Transmission Date: 20120928
  Serious: Yes (Hospitalization, Other)
  Sender: FDA-Public Use
  Company Number: US-ELI_LILLY_AND_COMPANY-US201107002188

PATIENT
  Sex: Female
  Weight: 52.834 kg

DRUGS (12)
  1. VITAMIN B-12 [Concomitant]
     Dosage: UNK, MONTHLY (1/M)
  2. EVISTA [Suspect]
     Indication: OSTEOPOROSIS
     Dosage: 60 MG, QD
     Route: 048
     Dates: end: 20051101
  3. ACTONEL [Concomitant]
  4. FORTEO [Suspect]
     Dosage: 20 UG, QD
     Route: 065
  5. FORTEO [Suspect]
     Dosage: 20 UG, QD
  6. SYNTHROID [Concomitant]
  7. FORTEO [Suspect]
     Indication: OSTEOPOROSIS
     Dosage: 20 UG, QD
     Route: 065
     Dates: start: 20110624
  8. FORTEO [Suspect]
     Dosage: 20 UG, QD
     Route: 065
  9. GLUCOPHAGE [Concomitant]
  10. VYTORIN [Concomitant]
  11. ATACAND [Concomitant]
  12. ASPIRIN [Concomitant]

REACTIONS (29)
  - SKIN ATROPHY [None]
  - DIZZINESS [None]
  - GAIT DISTURBANCE [None]
  - OSTEOPOROSIS [None]
  - ARTHRALGIA [None]
  - LOOSE TOOTH [None]
  - DRY SKIN [None]
  - MALAISE [None]
  - MUSCLE ATROPHY [None]
  - MYALGIA [None]
  - SKIN DISORDER [None]
  - FEELING HOT [None]
  - MUSCULOSKELETAL PAIN [None]
  - WEIGHT DECREASED [None]
  - HIP FRACTURE [None]
  - TOOTH DISORDER [None]
  - BONE PAIN [None]
  - BACK PAIN [None]
  - FALL [None]
  - HYPERSENSITIVITY [None]
  - ASTHENIA [None]
  - CLAVICLE FRACTURE [None]
  - NECK PAIN [None]
  - TOOTH ABSCESS [None]
  - DYSPNOEA [None]
  - ERYTHEMA [None]
  - APHAGIA [None]
  - MEMORY IMPAIRMENT [None]
  - SKIN EXFOLIATION [None]
